FAERS Safety Report 21476865 (Version 3)
Quarter: 2022Q4

REPORT INFORMATION
  Report Type: Report from Study
  Country: US (occurrence: US)
  Receive Date: 20221019
  Receipt Date: 20221031
  Transmission Date: 20230113
  Serious: No
  Sender: FDA-Public Use
  Company Number: US-NOVARTISTESTPH-NVSC2022US233447

PATIENT
  Age: 69 Year
  Sex: Female

DRUGS (2)
  1. GLATOPA [Suspect]
     Active Substance: GLATIRAMER ACETATE
     Indication: Multiple sclerosis
     Dosage: 40 MG, QW3 (3 TIMES A WEEK)
     Route: 065
     Dates: start: 20211013
  2. GLATOPA [Suspect]
     Active Substance: GLATIRAMER ACETATE
     Dosage: 40 MG (EVERY 48 HOURS)
     Route: 058

REACTIONS (6)
  - Burning sensation [Unknown]
  - Pruritus [Unknown]
  - Injection site pruritus [Unknown]
  - Injection site erythema [Unknown]
  - Incorrect dose administered by device [Unknown]
  - Device malfunction [Unknown]

NARRATIVE: CASE EVENT DATE: 20211013
